FAERS Safety Report 12085877 (Version 1)
Quarter: 2016Q1

REPORT INFORMATION
  Report Type: Spontaneous
  Country: US (occurrence: US)
  Receive Date: 20160217
  Receipt Date: 20160217
  Transmission Date: 20160526
  Serious: No
  Sender: FDA-Public Use
  Company Number: US-BIOGEN-2016BI00188177

PATIENT
  Sex: Female

DRUGS (1)
  1. AVONEX [Suspect]
     Active Substance: INTERFERON BETA-1A
     Indication: MULTIPLE SCLEROSIS
     Route: 065
     Dates: start: 19970401, end: 20060120

REACTIONS (6)
  - Gait disturbance [Recovered/Resolved]
  - Drug ineffective [Recovered/Resolved]
  - Learning disorder [Recovered/Resolved]
  - Aphasia [Recovered/Resolved]
  - Mobility decreased [Recovered/Resolved]
  - Central nervous system lesion [Recovered/Resolved]
